FAERS Safety Report 7453578-8 (Version None)
Quarter: 2011Q2

REPORT INFORMATION
  Report Type: 
  Country: None (occurrence: None)
  Receive Date: 20110502
  Receipt Date: 20110419
  Transmission Date: 20111010
  Serious: No
  Sender: FDA-Public Use
  Company Number: US-B.I. PHARMACEUTICALS,INC./RIDGEFIELD-2010-BP-08996BP

PATIENT
  Sex: Female

DRUGS (21)
  1. VIT B12 [Concomitant]
     Route: 060
  2. SPIRIVA [Suspect]
     Indication: CHRONIC OBSTRUCTIVE PULMONARY DISEASE
     Dosage: 18 MCG
     Route: 055
     Dates: start: 20091001, end: 20110318
  3. LEVOTHYROXINE SODIUM [Concomitant]
     Dosage: 200 MG
  4. WELLBUTRIN XL [Concomitant]
     Dosage: 300 MG
  5. POTASSIUM CHLORIDE MICRO [Concomitant]
     Dosage: 20 MG
  6. DIOVAN [Concomitant]
     Dosage: 80 MG
  7. DIGOXIN [Concomitant]
     Dates: end: 20110204
  8. ALBUTEROL [Concomitant]
  9. SOTALOL HCL [Concomitant]
     Dosage: 125 MG
     Dates: start: 20110101
  10. VITAMIN D [Concomitant]
  11. PRENATAL PLUS [Concomitant]
  12. LEVOTHYROXINE SODIUM [Concomitant]
     Dosage: 50 MG
  13. ATENOLOL [Concomitant]
     Dosage: 100 MG
     Dates: end: 20110204
  14. ADVAIR DISKUS 100/50 [Concomitant]
  15. CALCIUM CITRATE [Concomitant]
  16. FUROSEMIDE [Concomitant]
     Dosage: 40 MG
  17. ATENOLOL [Concomitant]
     Dosage: 50 MG
     Dates: start: 20110204
  18. IMODIUM [Concomitant]
  19. SIMVASTATIN [Concomitant]
     Dosage: 20 MG
  20. ZAFIRLUKAST [Concomitant]
     Dosage: 40 MG
  21. COUMADIN [Concomitant]

REACTIONS (4)
  - DRY MOUTH [None]
  - DYSPHONIA [None]
  - SKIN DISCOLOURATION [None]
  - POLYP [None]
